FAERS Safety Report 7921682 (Version 4)
Quarter: 2013Q1

REPORT INFORMATION
  Report Type: Spontaneous
  Country: US (occurrence: US)
  Receive Date: 20110429
  Receipt Date: 20130218
  Transmission Date: 20140127
  Serious: Yes (Other)
  Sender: FDA-Public Use
  Company Number: US-ASTRAZENECA-2010SE50138

PATIENT
  Age: 46 Year
  Sex: Female

DRUGS (4)
  1. ATACAND [Suspect]
     Route: 048
  2. NEXIUM [Suspect]
     Dosage: DAILY
     Route: 048
  3. NEXIUM [Suspect]
     Dosage: TWICE A DAY
     Route: 048
  4. SEROQUEL XR [Suspect]
     Route: 048

REACTIONS (10)
  - Ulcer haemorrhage [Unknown]
  - Haematemesis [Unknown]
  - Suicidal ideation [Unknown]
  - Dyspepsia [Unknown]
  - Hypertension [Unknown]
  - Vomiting [Unknown]
  - Off label use [Unknown]
  - Intentional drug misuse [Unknown]
  - Therapeutic response decreased [Unknown]
  - Drug ineffective [Unknown]
